FAERS Safety Report 6187605-5 (Version None)
Quarter: 2009Q2

REPORT INFORMATION
  Report Type: 
  Country: None (occurrence: None)
  Receive Date: 20090511
  Receipt Date: 20080429
  Transmission Date: 20091009
  Serious: Yes (Death)
  Sender: FDA-Public Use
  Company Number: USPFP-L-20080003

PATIENT
  Age: 73 Year
  Sex: Female

DRUGS (1)
  1. NAVELBINE [Suspect]
     Indication: BREAST CANCER
     Dosage: 30 MG/M2 1 X WK IV
     Route: 045

REACTIONS (1)
  - NEUTROPENIC SEPSIS [None]
